FAERS Safety Report 9448548 (Version 1)
Quarter: 2013Q3

REPORT INFORMATION
  Report Type: Spontaneous
  Country: US (occurrence: US)
  Receive Date: 20130808
  Receipt Date: 20130808
  Transmission Date: 20140515
  Serious: No
  Sender: FDA-Public Use
  Company Number: US-BAUSCH-BL-2012-000663

PATIENT
  Age: 60 Year
  Sex: Female

DRUGS (5)
  1. CROMOLYN SODIUM NASAL SOLUTION USP [Suspect]
     Indication: SEASONAL ALLERGY
     Dosage: ONE SPRAY IN EACH NOSTRIL TWICE DAILY
     Route: 045
     Dates: end: 20120812
  2. INSULIN [Concomitant]
  3. LEVOTHYROXINE [Concomitant]
  4. METOPROLOL [Concomitant]
  5. HYDROCHLOROTHIAZIDE [Concomitant]

REACTIONS (1)
  - Rhinitis [Not Recovered/Not Resolved]
